FAERS Safety Report 22233317 (Version 1)
Quarter: 2023Q2

REPORT INFORMATION
  Report Type: Spontaneous
  Country: US (occurrence: None)
  Receive Date: 20230420
  Receipt Date: 20230420
  Transmission Date: 20230721
  Serious: No
  Sender: FDA-Public Use
  Company Number: US-ROCHE-3101497

PATIENT
  Sex: Female

DRUGS (11)
  1. ESBRIET [Suspect]
     Active Substance: PIRFENIDONE
     Indication: Idiopathic pulmonary fibrosis
     Dosage: TAKE 1 CAPSULE 3 TIMES DAILY X1 WEEK,  THEN 2 CAPS 3 TIMES DAILY X1 WEEK, THEN 3 CAPS 3 TIMES DAILY
     Route: 048
     Dates: start: 20220515
  2. ESBRIET [Suspect]
     Active Substance: PIRFENIDONE
     Route: 048
     Dates: start: 20220509
  3. AZULFIDINE [Concomitant]
     Active Substance: SULFASALAZINE
  4. CELEBREX [Concomitant]
     Active Substance: CELECOXIB
  5. CLOBETASOL [Concomitant]
     Active Substance: CLOBETASOL
  6. LEVOTHYROXINE [Concomitant]
     Active Substance: LEVOTHYROXINE
     Dosage: 50 MCG
  7. LEXAPRO [Concomitant]
     Active Substance: ESCITALOPRAM OXALATE
  8. MAGNESIUM [Concomitant]
     Active Substance: MAGNESIUM
  9. OMEGA 3 [Concomitant]
     Active Substance: CAPSAICIN
  10. THERATEARS [Concomitant]
     Active Substance: CARBOXYMETHYLCELLULOSE SODIUM
  11. HERBALS\TURMERIC [Concomitant]
     Active Substance: HERBALS\TURMERIC

REACTIONS (6)
  - Dizziness [Not Recovered/Not Resolved]
  - Dyspnoea [Not Recovered/Not Resolved]
  - Secretion discharge [Not Recovered/Not Resolved]
  - Nausea [Not Recovered/Not Resolved]
  - Diarrhoea [Not Recovered/Not Resolved]
  - Vomiting [Not Recovered/Not Resolved]
